FAERS Safety Report 4354494-0 (Version None)
Quarter: 2004Q2

REPORT INFORMATION
  Report Type: 
  Country: None (occurrence: None)
  Receive Date: 20040503
  Receipt Date: 20040426
  Transmission Date: 20050107
  Serious: Yes (Death)
  Sender: FDA-Public Use
  Company Number: 230664K04USA

PATIENT
  Age: 37 Year
  Sex: Female

DRUGS (9)
  1. REBIF [Suspect]
     Indication: MULTIPLE SCLEROSIS
     Dosage: 44 MCG, 3 IN 1 WEEKS, SUBCUTANEOUS
     Route: 058
     Dates: start: 20031010, end: 20040207
  2. LACTULOSE [Concomitant]
  3. BACLOFEN [Concomitant]
  4. FENTANYL [Concomitant]
  5. TOPIRMATE [Concomitant]
  6. TIZANIDINE HYDROCHLORIDE [Concomitant]
  7. CLONAZEPAM [Concomitant]
  8. VICODIN [Concomitant]
  9. PAROXETINE HYDROCHLORIDE [Concomitant]

REACTIONS (3)
  - COMPLETED SUICIDE [None]
  - PAIN [None]
  - URINARY TRACT INFECTION [None]
